FAERS Safety Report 8738778 (Version 2)
Quarter: 2012Q4

REPORT INFORMATION
  Report Type: Report from Study
  Country: FR (occurrence: FR)
  Receive Date: 20120823
  Receipt Date: 20121226
  Transmission Date: 20130627
  Serious: Yes (Hospitalization)
  Sender: FDA-Public Use
  Company Number: FR-009507513-1208FRA006780

PATIENT

DRUGS (5)
  1. ISENTRESS [Suspect]
     Indication: HIV INFECTION
     Dosage: 400 mg, bid
     Route: 048
     Dates: start: 20120223
  2. MARAVIROC [Suspect]
     Indication: HIV INFECTION
     Dosage: 300 mg, bid
     Dates: start: 20120223
  3. VIMPAT [Suspect]
     Indication: NEUROPATHY PERIPHERAL
     Dosage: 100 mg, bid
     Dates: start: 20120618
  4. COOLMETEC [Suspect]
     Indication: HYPERTENSION
     Dosage: 20 mg, qd
     Dates: start: 20080623, end: 20120723
  5. UVEDOSE [Suspect]
     Indication: HYPOVITAMINOSIS
     Dosage: 2 DF, qd
     Dates: start: 20090921

REACTIONS (3)
  - Malaise [Recovered/Resolved]
  - Vision blurred [Recovered/Resolved]
  - Renal failure [Recovered/Resolved]
